FAERS Safety Report 9237361 (Version 1)
Quarter: 2013Q2

REPORT INFORMATION
  Report Type: Spontaneous
  Country: GB (occurrence: GB)
  Receive Date: 20130417
  Receipt Date: 20130417
  Transmission Date: 20140414
  Serious: Yes (Disabling, Other)
  Sender: FDA-Public Use
  Company Number: GB-B.I. PHARMACEUTICALS,INC./RIDGEFIELD-2013-UK-00872UK

PATIENT
  Age: 79 Year
  Sex: Female
  Weight: 75 kg

DRUGS (6)
  1. PERSANTIN [Suspect]
     Dates: start: 20130306
  2. ASPIRIN [Concomitant]
     Dates: start: 20121203
  3. BENDROFLUMETHIAZIDE [Concomitant]
     Dates: start: 20121203
  4. RAMIPRIL [Concomitant]
     Dates: start: 20121203
  5. SIMVASTATIN [Concomitant]
     Dates: start: 20121203
  6. TERAZOSIN [Concomitant]
     Dates: start: 20121203

REACTIONS (2)
  - Myalgia [Recovered/Resolved]
  - Arthralgia [Recovered/Resolved]
